FAERS Safety Report 11428467 (Version 1)
Quarter: 2015Q3

REPORT INFORMATION
  Report Type: Spontaneous
  Country: US (occurrence: US)
  Receive Date: 20150828
  Receipt Date: 20150828
  Transmission Date: 20151125
  Serious: No
  Sender: FDA-Public Use
  Company Number: US-ROCHE-723816

PATIENT
  Age: 51 Year
  Sex: Male

DRUGS (2)
  1. PEGASYS [Suspect]
     Active Substance: PEGINTERFERON ALFA-2A
     Indication: HEPATITIS C
     Dosage: 53 WEEK LONG THERAPY
     Route: 058
     Dates: start: 20100803, end: 20110802
  2. COPEGUS [Suspect]
     Active Substance: RIBAVIRIN
     Indication: HEPATITIS C
     Dosage: IN DIVIDED DOSES, FREQUENCY: /DAY,53 WEEK LONG THERAPY
     Route: 048
     Dates: start: 20100803, end: 20110802

REACTIONS (20)
  - Weight decreased [Unknown]
  - Rash [Not Recovered/Not Resolved]
  - Rash [Unknown]
  - Abnormal faeces [Not Recovered/Not Resolved]
  - Injection site erythema [Unknown]
  - Dizziness [Not Recovered/Not Resolved]
  - Haematochezia [Not Recovered/Not Resolved]
  - Hepatic enzyme increased [Unknown]
  - Productive cough [Unknown]
  - Dysstasia [Unknown]
  - Pain in extremity [Unknown]
  - Abdominal pain upper [Unknown]
  - Depression [Not Recovered/Not Resolved]
  - Dry skin [Unknown]
  - Injection site mass [Unknown]
  - Fatigue [Not Recovered/Not Resolved]
  - Product quality issue [Unknown]
  - Decreased appetite [Not Recovered/Not Resolved]
  - Pyrexia [Unknown]
  - Night sweats [Unknown]

NARRATIVE: CASE EVENT DATE: 20100803
